FAERS Safety Report 10016579 (Version 3)
Quarter: 2014Q3

REPORT INFORMATION
  Report Type: Spontaneous
  Country: FR (occurrence: FR)
  Receive Date: 20140317
  Receipt Date: 20140705
  Transmission Date: 20150326
  Serious: Yes (Disabling, Other)
  Sender: FDA-Public Use
  Company Number: FR-ABBVIE-14P-056-1211538-00

PATIENT
  Sex: Female

DRUGS (1)
  1. ENANTONE LP [Suspect]
     Active Substance: LEUPROLIDE ACETATE
     Indication: PRECOCIOUS PUBERTY
     Route: 050
     Dates: start: 2006, end: 200712

REACTIONS (10)
  - Mental disorder [Unknown]
  - Gait disturbance [Unknown]
  - Affective disorder [Unknown]
  - Motor dysfunction [Unknown]
  - Headache [Unknown]
  - Myalgia [Unknown]
  - Decreased activity [Unknown]
  - Urinary tract disorder [Unknown]
  - Multiple sclerosis [Unknown]
  - Balance disorder [Unknown]
